FAERS Safety Report 5196345-0 (Version None)
Quarter: 2006Q4

REPORT INFORMATION
  Report Type: 
  Country: None (occurrence: None)
  Receive Date: 20061222
  Receipt Date: 20061215
  Transmission Date: 20070319
  Serious: Yes (Other)
  Sender: FDA-Public Use
  Company Number: 2006076423

PATIENT
  Age: 80 Year
  Sex: Female

DRUGS (7)
  1. LIPITOR [Suspect]
     Indication: HYPERLIPIDAEMIA
     Dosage: 5 MG (1 D), ORAL
     Route: 048
     Dates: start: 20060125, end: 20060424
  2. LANSOPRAZOLE [Concomitant]
  3. FUROSEMIDE [Concomitant]
  4. DIGOXIN [Concomitant]
  5. TRICHLORMETHIAZIDE [Concomitant]
  6. TRIAZOLAM [Concomitant]
  7. LEVOTHYROXINE SODIUM [Concomitant]

REACTIONS (1)
  - HEPATITIS FULMINANT [None]
